FAERS Safety Report 7262563-0 (Version None)
Quarter: 2011Q1

REPORT INFORMATION
  Report Type: 
  Country: None (occurrence: None)
  Receive Date: 20110130
  Receipt Date: 20101130
  Transmission Date: 20110831
  Serious: No
  Sender: FDA-Public Use
  Company Number: US-ABBOTT-10P-163-0688472-00

PATIENT
  Sex: Male

DRUGS (3)
  1. HUMIRA [Suspect]
     Indication: CROHN'S DISEASE
     Dosage: 160MG ONCE - LOADING DOSE
     Dates: start: 20101001, end: 20101001
  2. HUMIRA [Suspect]
     Dates: start: 20101101
  3. HUMIRA [Suspect]
     Dosage: 80MG ONCE - LOADING DOSE
     Dates: start: 20101001, end: 20101001

REACTIONS (1)
  - TOOTH ABSCESS [None]
